FAERS Safety Report 6193060-1 (Version None)
Quarter: 2009Q2

REPORT INFORMATION
  Report Type: 
  Country: None (occurrence: None)
  Receive Date: 20090518
  Receipt Date: 20081229
  Transmission Date: 20091009
  Serious: Yes (Hospitalization, Congenital Anomaly)
  Sender: FDA-Public Use
  Company Number: PHHY2008AR33464

PATIENT
  Sex: Male
  Weight: 3.25 kg

DRUGS (3)
  1. ACLASTA [Suspect]
     Indication: RHEUMATOID ARTHRITIS
     Dosage: UNK
     Route: 064
  2. PREDNISONE [Concomitant]
     Route: 064
  3. DIVINA [Concomitant]
     Route: 064

REACTIONS (5)
  - DRUG EXPOSURE DURING PREGNANCY [None]
  - DRUG EXPOSURE VIA BREAST MILK [None]
  - URETHRAL OBSTRUCTION [None]
  - URETHRAL OPERATION [None]
  - URINARY RETENTION [None]
